FAERS Safety Report 9054754 (Version 2)
Quarter: 2014Q1

REPORT INFORMATION
  Report Type: Spontaneous
  Country: FR (occurrence: FR)
  Receive Date: 20130208
  Receipt Date: 20140303
  Transmission Date: 20141002
  Serious: Yes (Hospitalization, Other)
  Sender: FDA-Public Use
  Company Number: FR-PFIZER INC-2013031829

PATIENT
  Age: 69 Year
  Sex: Female

DRUGS (9)
  1. VFEND [Suspect]
     Indication: ASPERGILLUS INFECTION
     Dosage: 20 MG, 2X/DAY
     Route: 042
     Dates: start: 20120704, end: 20120711
  2. VFEND [Suspect]
     Indication: ASPERGILLUS INFECTION
     Dosage: 200 MG, 2X/DAY
     Route: 048
     Dates: start: 20120711, end: 20120813
  3. VFEND [Suspect]
     Dosage: 200 MG, 2X/DAY
     Route: 048
     Dates: start: 20120906, end: 20120906
  4. COUMADINE [Concomitant]
     Indication: VENOUS THROMBOSIS
     Dosage: 2 MG, 1X/DAY
     Route: 048
     Dates: start: 20120704, end: 20120820
  5. AMBISOME [Concomitant]
     Indication: ASPERGILLUS INFECTION
     Dosage: UNK
     Route: 042
     Dates: start: 20120622, end: 20120704
  6. BISOCE [Concomitant]
     Indication: HYPERTENSION
     Dosage: 5 MG, 1X/DAY
     Route: 048
  7. LYRICA [Concomitant]
     Dosage: 150 MG, 2X/DAY
     Route: 048
  8. MOPRAL [Concomitant]
     Dosage: 10 MG, 1X/DAY
     Route: 048
  9. ZESTORETIC [Concomitant]
     Indication: HYPERTENSION
     Dosage: UNK
     Route: 048

REACTIONS (1)
  - Drug reaction with eosinophilia and systemic symptoms [Recovered/Resolved]
